FAERS Safety Report 23262667 (Version 1)
Quarter: 2023Q4

REPORT INFORMATION
  Report Type: Spontaneous
  Country: JP (occurrence: JP)
  Receive Date: 20231205
  Receipt Date: 20231205
  Transmission Date: 20240109
  Serious: Yes (Hospitalization, Other)
  Sender: FDA-Public Use
  Company Number: JP-AMGEN-JPNSP2023211935

PATIENT
  Age: 60 Year
  Sex: Female
  Weight: 56 kg

DRUGS (6)
  1. OTEZLA [Suspect]
     Active Substance: APREMILAST
     Indication: Pustular psoriasis
     Dosage: 60 MILLIGRAM, QD
     Route: 065
  2. ADALIMUMAB [Suspect]
     Active Substance: ADALIMUMAB\ISOPROPYL ALCOHOL
     Indication: Product used for unknown indication
     Dosage: UNK
     Route: 065
  3. METHOTREXATE [Concomitant]
     Active Substance: METHOTREXATE
     Route: 048
  4. UPADACITINIB [Concomitant]
     Active Substance: UPADACITINIB
     Dosage: 30 MG QD, 15 MG QD
     Route: 048
  5. IXEKIZUMAB [Concomitant]
     Active Substance: IXEKIZUMAB
  6. CERTOLIZUMAB PEGOL [Concomitant]
     Active Substance: CERTOLIZUMAB PEGOL
     Dosage: 400 MILLIGRAM, QD

REACTIONS (10)
  - Pustular psoriasis [Recovered/Resolved]
  - Renal impairment [Unknown]
  - Anaphylactic shock [Recovered/Resolved]
  - SAPHO syndrome [Recovered/Resolved]
  - Haemoglobin decreased [Unknown]
  - Hepatic function abnormal [Unknown]
  - Headache [Unknown]
  - Nausea [Unknown]
  - Dizziness [Unknown]
  - Adverse drug reaction [Unknown]
